FAERS Safety Report 16531082 (Version 1)
Quarter: 2019Q3

REPORT INFORMATION
  Report Type: Spontaneous
  Country: DE (occurrence: DE)
  Receive Date: 20190705
  Receipt Date: 20190705
  Transmission Date: 20191004
  Serious: Yes (Hospitalization, Other)
  Sender: FDA-Public Use
  Company Number: DE-AUROBINDO-AUR-APL-2016-03026

PATIENT

DRUGS (5)
  1. FOLIC ACID. [Concomitant]
     Active Substance: FOLIC ACID
     Indication: PROPHYLAXIS OF NEURAL TUBE DEFECT
     Dosage: UNK
     Route: 048
  2. LEVETIRACETAM. [Suspect]
     Active Substance: LEVETIRACETAM
     Dosage: UNK(INCREASED  UP TO 4000 MG DAILY)
     Route: 048
     Dates: start: 2015, end: 20150602
  3. CARBAMAZEPINE. [Suspect]
     Active Substance: CARBAMAZEPINE
     Indication: EPILEPSY
     Dosage: 1200 MILLIGRAM, ONCE A DAY(1200 MG, ONCE DAILY (QD) IN THE EVENING )
     Route: 048
     Dates: start: 20141226, end: 20150602
  4. LAMOTRIGINE. [Concomitant]
     Active Substance: LAMOTRIGINE
     Indication: EPILEPSY
     Dosage: UNK
     Route: 048
     Dates: start: 20150217, end: 20150224
  5. LEVETIRACETAM. [Suspect]
     Active Substance: LEVETIRACETAM
     Indication: EPILEPSY
     Dosage: UNK
     Route: 048
     Dates: start: 20150224, end: 2015

REACTIONS (4)
  - Maternal exposure during pregnancy [Unknown]
  - Overdose [Unknown]
  - Off label use [Unknown]
  - Abortion induced [Unknown]

NARRATIVE: CASE EVENT DATE: 2015
